FAERS Safety Report 16316314 (Version 3)
Quarter: 2019Q2

REPORT INFORMATION
  Report Type: Spontaneous
  Country: US (occurrence: US)
  Receive Date: 20190515
  Receipt Date: 20190523
  Transmission Date: 20190711
  Serious: Yes (Other)
  Sender: FDA-Public Use
  Company Number: US-PFIZER INC-2019203745

PATIENT

DRUGS (5)
  1. SUCCINYLCHOLINE CHLORIDE. [Suspect]
     Active Substance: SUCCINYLCHOLINE CHLORIDE
     Dosage: 80 MG, UNK
     Route: 064
  2. SUCCINYLCHOLINE CHLORIDE. [Suspect]
     Active Substance: SUCCINYLCHOLINE CHLORIDE
     Dosage: ADDITIONAL 60 MG
     Route: 064
  3. THIOPENTAL SODIUM. [Concomitant]
     Active Substance: THIOPENTAL SODIUM
     Dosage: 150 MG, UNK
     Route: 064
  4. ATROPINE. [Concomitant]
     Active Substance: ATROPINE
     Dosage: 0.5 MG, UNK
     Route: 064
  5. NITROUS OXIDE/OXYGEN [Concomitant]
     Dosage: 4 L: 2 L/MIN
     Route: 064

REACTIONS (2)
  - Neuromuscular blockade [Recovered/Resolved]
  - Hypoventilation [Recovered/Resolved]
